FAERS Safety Report 21732268 (Version 1)
Quarter: 2022Q4

REPORT INFORMATION
  Report Type: Spontaneous
  Country: US (occurrence: None)
  Receive Date: 20221214
  Receipt Date: 20221214
  Transmission Date: 20230112
  Serious: No
  Sender: FDA-Public Use
  Company Number: None

PATIENT
  Sex: Female

DRUGS (1)
  1. DEVICE [Suspect]
     Active Substance: DEVICE
     Indication: Breast cancer female
     Dosage: 3.75MG ONCE MONTHLY INTRAMUSCULAR
     Route: 030
     Dates: start: 20221214

REACTIONS (3)
  - Drug dose omission by device [None]
  - Syringe issue [None]
  - Occupational exposure to product [None]
